FAERS Safety Report 8538756-9 (Version None)
Quarter: 2012Q3

REPORT INFORMATION
  Report Type: 
  Country: None (occurrence: None)
  Receive Date: 20120726
  Receipt Date: 20111208
  Transmission Date: 20120928
  Serious: No
  Sender: FDA-Public Use
  Company Number: US-MYLANLABS-2011S1023024

PATIENT
  Age: 66 Year
  Sex: Female

DRUGS (7)
  1. SIMVASTATIN [Concomitant]
     Indication: BLOOD CHOLESTEROL
  2. VITAMIN [Concomitant]
  3. CALCIUM [Concomitant]
  4. TRAMADOL HYDROCHLORIDE [Suspect]
     Indication: ARTHRALGIA
     Route: 048
     Dates: start: 20111012
  5. LISINOPRIL [Concomitant]
     Indication: HYPERTENSION
  6. BUPROPION HCL [Concomitant]
     Indication: DEPRESSION
  7. ASPIRIN [Concomitant]

REACTIONS (1)
  - PHOTOSENSITIVITY REACTION [None]
